FAERS Safety Report 23567755 (Version 1)
Quarter: 2024Q1

REPORT INFORMATION
  Report Type: Spontaneous
  Country: US (occurrence: US)
  Receive Date: 20240226
  Receipt Date: 20240226
  Transmission Date: 20240410
  Serious: No
  Sender: FDA-Public Use
  Company Number: US-PCCINC-2024-PPL-000131

PATIENT

DRUGS (2)
  1. GABLOFEN [Suspect]
     Active Substance: BACLOFEN
     Indication: Product used for unknown indication
     Dosage: 369.9 MCG/DAY
     Route: 037
  2. BUPIVACAINE [Suspect]
     Active Substance: BUPIVACAINE
     Indication: Product used for unknown indication
     Dosage: 5.706 MG/DAY
     Route: 037

REACTIONS (3)
  - Implant site extravasation [Recovered/Resolved]
  - Myalgia [Recovered/Resolved]
  - Off label use [Unknown]
